FAERS Safety Report 16538155 (Version 3)
Quarter: 2019Q3

REPORT INFORMATION
  Report Type: Spontaneous
  Country: US (occurrence: US)
  Receive Date: 20190708
  Receipt Date: 20190816
  Transmission Date: 20191004
  Serious: Yes (Other)
  Sender: FDA-Public Use
  Company Number: US-SA-2019SA178570

PATIENT
  Sex: Male

DRUGS (2)
  1. RASUVO [Concomitant]
     Active Substance: METHOTREXATE SODIUM
     Dosage: 17 MG, QW
  2. KEVZARA [Suspect]
     Active Substance: SARILUMAB
     Indication: RHEUMATOID ARTHRITIS
     Dosage: 200 MG, QOW
     Route: 058
     Dates: start: 201901

REACTIONS (3)
  - Hepatic enzyme abnormal [Unknown]
  - Lymphoma [Unknown]
  - Neutrophil count abnormal [Unknown]

NARRATIVE: CASE EVENT DATE: 2019
